FAERS Safety Report 16767829 (Version 6)
Quarter: 2020Q2

REPORT INFORMATION
  Report Type: Spontaneous
  Country: PT (occurrence: PT)
  Receive Date: 20190903
  Receipt Date: 20200430
  Transmission Date: 20200713
  Serious: Yes (Hospitalization, Other)
  Sender: FDA-Public Use
  Company Number: PT-MYLANLABS-2019M1081772

PATIENT
  Age: 69 Year
  Sex: Female

DRUGS (4)
  1. FUROSEMIDA                         /00032601/ [Interacting]
     Active Substance: FUROSEMIDE
     Indication: DIABETIC METABOLIC DECOMPENSATION
     Dosage: 40 MILLIGRAM, QD
     Route: 048
  2. METFORMIN [Suspect]
     Active Substance: METFORMIN HYDROCHLORIDE
     Indication: DIABETES MELLITUS
     Dosage: 1700 MILLIGRAM, QD
     Route: 048
  3. DAPAGLIFLOZIN. [Interacting]
     Active Substance: DAPAGLIFLOZIN
     Indication: DIABETES MELLITUS
  4. DAPAGLIFLOZIN. [Interacting]
     Active Substance: DAPAGLIFLOZIN
     Indication: DIABETIC METABOLIC DECOMPENSATION
     Dosage: 10 MILLIGRAM, QD
     Route: 048

REACTIONS (16)
  - Drug ineffective [Unknown]
  - Food refusal [Unknown]
  - Dehydration [Unknown]
  - Hypernatraemia [Unknown]
  - Acute kidney injury [Unknown]
  - Cardiac failure [Unknown]
  - Diabetic metabolic decompensation [Unknown]
  - Metabolic acidosis [Unknown]
  - Fatigue [Unknown]
  - Off label use [Unknown]
  - Diabetic ketoacidosis [Unknown]
  - Drug interaction [Unknown]
  - Acidosis [Unknown]
  - Urine ketone body present [Unknown]
  - Eating disorder [Unknown]
  - Intentional product misuse [Unknown]
